FAERS Safety Report 10646721 (Version 2)
Quarter: 2014Q4

REPORT INFORMATION
  Report Type: Spontaneous
  Country: FR (occurrence: FR)
  Receive Date: 20141211
  Receipt Date: 20141230
  Transmission Date: 20150529
  Serious: Yes (Death)
  Sender: FDA-Public Use
  Company Number: FR-PFIZER INC-2014336431

PATIENT
  Age: 91 Year
  Sex: Female

DRUGS (18)
  1. LASILIX [Suspect]
     Active Substance: FUROSEMIDE
     Dosage: 40 MG, 1X/DAY
     Route: 048
     Dates: start: 20141014, end: 20141020
  2. HALDOL [Suspect]
     Active Substance: HALOPERIDOL
     Dosage: 10 GTT, 1X/DAY
     Route: 048
     Dates: start: 20141016, end: 20141016
  3. ECONAZOLE SANDOZ [Concomitant]
     Active Substance: ECONAZOLE
     Dosage: 1 DF, 3X/DAY
     Route: 003
  4. PYOSTACINE [Suspect]
     Active Substance: PRISTINAMYCIN
     Indication: RESPIRATORY TRACT INFECTION
     Dosage: UNK
     Dates: start: 20141002, end: 20141006
  5. MOVICOL [Suspect]
     Active Substance: POLYETHYLENE GLYCOL 3350\POTASSIUM CHLORIDE\SODIUM BICARBONATE\SODIUM CHLORIDE
     Dosage: 1 DF, 2X/DAY
     Route: 048
     Dates: start: 20141016
  6. CETIRIZINE [Suspect]
     Active Substance: CETIRIZINE HYDROCHLORIDE
     Dosage: 10 MG, 1X/DAY
     Route: 048
     Dates: start: 20141016, end: 20141020
  7. METRONIDAZOLE ^BRAUN^ [Suspect]
     Active Substance: METRONIDAZOLE
     Indication: INFECTION
     Dosage: 1 DF, 3X/DAY
     Route: 041
     Dates: start: 20141014, end: 20141020
  8. JANUVIA [Concomitant]
     Active Substance: SITAGLIPTIN PHOSPHATE
     Dosage: 50 MG, 2X/DAY
     Route: 048
  9. ALDACTONE [Suspect]
     Active Substance: SPIRONOLACTONE
     Dosage: 12.5 MG, 1X/DAY
     Route: 048
     Dates: start: 20141014, end: 20141020
  10. SERESTA [Suspect]
     Active Substance: OXAZEPAM
     Dosage: 5 MG, 1X/DAY
     Route: 048
     Dates: start: 20141016, end: 20141020
  11. PREVISCAN [Concomitant]
     Active Substance: FLUINDIONE
     Dosage: 10 MG, 1X/DAY
     Route: 048
  12. HEMIGOXINE NATIVELLE [Concomitant]
     Active Substance: DIGOXIN
     Dosage: 0.5 DF, 1X/DAY
     Route: 048
  13. QUITAXON [Concomitant]
     Active Substance: DOXEPIN HYDROCHLORIDE
     Dosage: 10 MG, 2X/DAY
     Route: 048
  14. DOMPERIDONE ARROW /00498201/ [Concomitant]
     Dosage: 10 MG, 2X/DAY
     Route: 048
  15. CLARITHROMYCIN. [Suspect]
     Active Substance: CLARITHROMYCIN
     Indication: RESPIRATORY TRACT INFECTION
     Dosage: UNK
     Dates: start: 20141006, end: 20141013
  16. CEFTRIAXONE MYLAN [Suspect]
     Active Substance: CEFTRIAXONE
     Indication: INFECTION
     Dosage: 1 G, 1X/DAY
     Route: 051
     Dates: start: 20141014, end: 20141018
  17. PANTOPRAZOLE [Suspect]
     Active Substance: PANTOPRAZOLE SODIUM
     Dosage: 40 MG, 1X/DAY
     Route: 048
     Dates: start: 20141014, end: 20141020
  18. LEVOFLOXACINE MYLAN /01278901/ [Suspect]
     Active Substance: LEVOFLOXACIN
     Dosage: 500 MG, 2X/DAY
     Route: 048
     Dates: start: 20141018, end: 20141020

REACTIONS (1)
  - Toxic epidermal necrolysis [Fatal]

NARRATIVE: CASE EVENT DATE: 20141018
